FAERS Safety Report 23298702 (Version 1)
Quarter: 2023Q4

REPORT INFORMATION
  Report Type: Spontaneous
  Country: DE (occurrence: DE)
  Receive Date: 20231214
  Receipt Date: 20231214
  Transmission Date: 20240109
  Serious: Yes (Hospitalization, Other)
  Sender: FDA-Public Use
  Company Number: DE-Boehringer Ingelheim GmbH, Germany-2016-BI-43452DE

PATIENT
  Age: 82 Year
  Sex: Female
  Weight: 73 kg

DRUGS (6)
  1. DOCETAXEL [Suspect]
     Active Substance: DOCETAXEL\DOCETAXEL ANHYDROUS
     Indication: Non-small cell lung cancer
     Dosage: UNK, (FORM OF ADMIN: LIQUID)
     Route: 042
     Dates: start: 20160517
  2. NINTEDANIB [Suspect]
     Active Substance: NINTEDANIB
     Indication: Non-small cell lung cancer
     Dosage: 200 MILLIGRAM, TWO TIMES A DAY
     Route: 048
     Dates: start: 20160517, end: 20160830
  3. BISOPROLOL [Concomitant]
     Active Substance: BISOPROLOL\BISOPROLOL FUMARATE
     Indication: Product used for unknown indication
     Dosage: 1.25 MILLIGRAM, ONCE A DAY
     Route: 065
  4. SIMVASTATIN [Concomitant]
     Active Substance: SIMVASTATIN
     Indication: Product used for unknown indication
     Dosage: UNK
     Route: 065
  5. Spasmex [Concomitant]
     Indication: Product used for unknown indication
     Dosage: UNK
     Route: 065
  6. SPIRIVA [Concomitant]
     Active Substance: TIOTROPIUM BROMIDE MONOHYDRATE
     Indication: Product used for unknown indication
     Dosage: 18 MICROGRAM, ONCE A DAY
     Route: 065

REACTIONS (7)
  - Atrial tachycardia [Recovered/Resolved]
  - Leukopenia [Recovered/Resolved]
  - Alanine aminotransferase increased [Recovered/Resolved]
  - Influenza [Recovered/Resolved]
  - Nausea [Recovered/Resolved]
  - Transaminases increased [Recovered/Resolved]
  - White blood cell count decreased [Recovered/Resolved]

NARRATIVE: CASE EVENT DATE: 20160524
